FAERS Safety Report 4971565-6 (Version None)
Quarter: 2006Q2

REPORT INFORMATION
  Report Type: 
  Country: None (occurrence: None)
  Receive Date: 20060413
  Receipt Date: 20060403
  Transmission Date: 20061013
  Serious: Yes (Hospitalization)
  Sender: FDA-Public Use
  Company Number: US-JNJFOC-20060400548

PATIENT
  Sex: Male

DRUGS (24)
  1. DOXIL [Suspect]
     Route: 042
  2. DOXIL [Suspect]
     Route: 042
  3. DOXIL [Suspect]
     Indication: MULTIPLE MYELOMA
     Route: 042
  4. VELCADE [Suspect]
     Route: 042
  5. VELCADE [Suspect]
     Route: 042
  6. VELCADE [Suspect]
     Route: 042
  7. VELCADE [Suspect]
     Route: 042
  8. VELCADE [Suspect]
     Indication: MULTIPLE MYELOMA
     Route: 042
  9. DEXAMETHASONE [Suspect]
     Route: 048
  10. DEXAMETHASONE [Suspect]
     Route: 048
  11. DEXAMETHASONE [Suspect]
     Route: 048
  12. DEXAMETHASONE [Suspect]
     Indication: MULTIPLE MYELOMA
     Route: 048
  13. LIPITOR [Concomitant]
  14. LISINOPRIL [Concomitant]
  15. NIASPAN [Concomitant]
  16. ASPIRIN [Concomitant]
  17. LUNESTA [Concomitant]
  18. PRILOSEC [Concomitant]
  19. ATENOLOL [Concomitant]
  20. AMILORIDE HCL AND HYDROCHLOROTHIAZIDE [Concomitant]
  21. XANAX [Concomitant]
     Route: 048
  22. VITAMIN B6 [Concomitant]
  23. COMPAZINE [Concomitant]
  24. ACYCLOVIR [Concomitant]

REACTIONS (3)
  - PNEUMONIA [None]
  - PULMONARY EMBOLISM [None]
  - SEPSIS [None]
